FAERS Safety Report 17855934 (Version 1)
Quarter: 2020Q2

REPORT INFORMATION
  Report Type: Report from Study
  Country: ES (occurrence: ES)
  Receive Date: 20200603
  Receipt Date: 20200603
  Transmission Date: 20200714
  Serious: Yes (Hospitalization, Other)
  Sender: FDA-Public Use
  Company Number: ES-MYLANLABS-2020M1053494

PATIENT
  Age: 79 Year
  Sex: Male

DRUGS (6)
  1. FLUCONAZOLE. [Suspect]
     Active Substance: FLUCONAZOLE
     Indication: OESOPHAGEAL CANDIDIASIS
     Dosage: 200 MILLIGRAM, QD
     Route: 048
     Dates: start: 20191105, end: 20191119
  2. ISONIAZID W/PYRIDOXINE [Interacting]
     Active Substance: ISONIAZID\PYRIDOXINE
     Indication: TUBERCULOSIS
     Dosage: 300 MILLIGRAM, QD
     Route: 048
     Dates: start: 20191008
  3. LINAGLIPTIN W/METFORMIN [Concomitant]
     Active Substance: LINAGLIPTIN\METFORMIN HYDROCHLORIDE
     Indication: DIABETES MELLITUS
     Dosage: 850 MILLIGRAM, QD
     Route: 048
     Dates: start: 20171212, end: 20191111
  4. ALENDRONIC ACID [Concomitant]
     Active Substance: ALENDRONIC ACID
     Indication: OSTEOPOROSIS
     Dosage: 70 MILLIGRAM, QW
     Route: 048
     Dates: start: 20171212
  5. ACENOCUMAROL [Interacting]
     Active Substance: ACENOCOUMAROL
     Indication: CONGENITAL HYPERCOAGULATION
     Dosage: UNK
     Route: 048
     Dates: start: 20180409
  6. PREDNISONA [Interacting]
     Active Substance: PREDNISONE
     Indication: POLYCHONDRITIS
     Dosage: 20 MILLIGRAM, QD
     Route: 048
     Dates: start: 20191105, end: 20191111

REACTIONS (3)
  - International normalised ratio increased [Recovered/Resolved]
  - Neutrophilic dermatosis [Not Recovered/Not Resolved]
  - Drug interaction [Unknown]

NARRATIVE: CASE EVENT DATE: 20191110
